FAERS Safety Report 14979626 (Version 6)
Quarter: 2018Q4

REPORT INFORMATION
  Report Type: Report from Study
  Country: US (occurrence: US)
  Receive Date: 20180606
  Receipt Date: 20181029
  Transmission Date: 20190204
  Serious: Yes (Hospitalization)
  Sender: FDA-Public Use
  Company Number: US-JNJFOC-20180601769

PATIENT
  Age: 10 Year
  Sex: Female
  Weight: 25.7 kg

DRUGS (4)
  1. COLAZAL [Concomitant]
     Active Substance: BALSALAZIDE DISODIUM
     Route: 048
  2. FISH OIL [Concomitant]
     Active Substance: FISH OIL
     Route: 048
  3. ALOE VERA [Concomitant]
     Active Substance: ALOE VERA LEAF
     Route: 048
  4. REMICADE [Suspect]
     Active Substance: INFLIXIMAB
     Indication: COLITIS ULCERATIVE
     Route: 042
     Dates: start: 201209

REACTIONS (2)
  - Pancreatitis acute [Recovered/Resolved]
  - Colitis ulcerative [Recovered/Resolved]

NARRATIVE: CASE EVENT DATE: 20171110
